FAERS Safety Report 5074608-7 (Version None)
Quarter: 2006Q3

REPORT INFORMATION
  Report Type: 
  Country: None (occurrence: None)
  Receive Date: 20060808
  Receipt Date: 20050823
  Transmission Date: 20061208
  Serious: No
  Sender: FDA-Public Use
  Company Number: US-AMGEN-US147582

PATIENT
  Sex: Female
  Weight: 74.5 kg

DRUGS (2)
  1. EPOGEN [Suspect]
     Indication: ANAEMIA
     Route: 065
  2. ARANESP [Suspect]
     Route: 058
     Dates: start: 20050825

REACTIONS (1)
  - THERAPEUTIC RESPONSE DECREASED [None]
